FAERS Safety Report 25949960 (Version 1)
Quarter: 2025Q4

REPORT INFORMATION
  Report Type: Spontaneous
  Country: EU (occurrence: EU)
  Receive Date: 20251022
  Receipt Date: 20251022
  Transmission Date: 20260117
  Serious: Yes (Hospitalization)
  Sender: VERTEX
  Company Number: EU-VERTEX PHARMACEUTICALS-2025-017303

PATIENT
  Age: 40 Year
  Sex: Female

DRUGS (2)
  1. ELEXACAFTOR\IVACAFTOR\TEZACAFTOR [Suspect]
     Active Substance: ELEXACAFTOR\IVACAFTOR\TEZACAFTOR
     Indication: Cystic fibrosis
     Dosage: (100 MG ELEXA/ 50 MG TEZA/ 75 MG IVA) IN THE AM
     Route: 048
     Dates: start: 201912
  2. IVACAFTOR [Suspect]
     Active Substance: IVACAFTOR
     Indication: Cystic fibrosis
     Dosage: 150 MG IVA IN THE PM
     Route: 048
     Dates: start: 201912

REACTIONS (3)
  - Haemoptysis [Unknown]
  - Exposure during pregnancy [Unknown]
  - Premature delivery [Unknown]
